FAERS Safety Report 9357108 (Version 1)
Quarter: 2013Q2

REPORT INFORMATION
  Report Type: Spontaneous
  Country: US (occurrence: US)
  Receive Date: 20130620
  Receipt Date: 20130620
  Transmission Date: 20140414
  Serious: No
  Sender: FDA-Public Use
  Company Number: US-BIOGENIDEC-2013BI052562

PATIENT
  Sex: Male

DRUGS (1)
  1. TYSABRI [Suspect]
     Indication: MULTIPLE SCLEROSIS
     Route: 042
     Dates: start: 20130403

REACTIONS (7)
  - Back pain [Not Recovered/Not Resolved]
  - Tooth extraction [Recovered/Resolved with Sequelae]
  - Hypoaesthesia [Not Recovered/Not Resolved]
  - Stress [Not Recovered/Not Resolved]
  - Gastrointestinal disorder [Not Recovered/Not Resolved]
  - Urinary incontinence [Not Recovered/Not Resolved]
  - Liver function test abnormal [Recovered/Resolved with Sequelae]
